FAERS Safety Report 23890995 (Version 1)
Quarter: 2024Q2

REPORT INFORMATION
  Report Type: Spontaneous
  Country: FR (occurrence: FR)
  Receive Date: 20240523
  Receipt Date: 20240523
  Transmission Date: 20240715
  Serious: Yes (Hospitalization)
  Sender: FDA-Public Use
  Company Number: FR-BoehringerIngelheim-2024-BI-029608

PATIENT
  Age: 35 Year
  Sex: Male

DRUGS (3)
  1. CLONIDINE [Suspect]
     Active Substance: CLONIDINE
     Indication: Hypertension
     Dosage: 1 DF
     Dates: start: 20231019
  2. PERFALGAN [Suspect]
     Active Substance: ACETAMINOPHEN
     Indication: Hand repair operation
     Dosage: 1 DF
     Dates: start: 20231019
  3. AUGMENTIN [Suspect]
     Active Substance: AMOXICILLIN\CLAVULANATE POTASSIUM
     Indication: Hand repair operation
     Dosage: 1 DF
     Dates: start: 20231019, end: 20231020

REACTIONS (1)
  - Acute generalised exanthematous pustulosis [Recovered/Resolved]

NARRATIVE: CASE EVENT DATE: 20231019
